FAERS Safety Report 9775076 (Version 1)
Quarter: 2013Q4

REPORT INFORMATION
  Report Type: Spontaneous
  Country: US (occurrence: US)
  Receive Date: 20131220
  Receipt Date: 20131220
  Transmission Date: 20140711
  Serious: No
  Sender: FDA-Public Use
  Company Number: US-GLAXOSMITHKLINE-A1047546A

PATIENT
  Sex: Male

DRUGS (4)
  1. AVODART [Suspect]
     Indication: PROSTATIC CALCIFICATION
     Dosage: 1CAP PER DAY
     Route: 048
     Dates: start: 2004, end: 201310
  2. LIPITOR [Concomitant]
  3. EFFEXOR [Concomitant]
  4. NORVASC [Concomitant]

REACTIONS (3)
  - Off label use [Unknown]
  - Glossodynia [Unknown]
  - Therapeutic response unexpected [Unknown]
